FAERS Safety Report 5948360-4 (Version None)
Quarter: 2008Q4

REPORT INFORMATION
  Report Type: 
  Country: None (occurrence: None)
  Receive Date: 20081111
  Receipt Date: 20081103
  Transmission Date: 20090506
  Serious: Yes (Other)
  Sender: FDA-Public Use
  Company Number: US-AVENTIS-200817556US

PATIENT
  Sex: Male
  Weight: 101.15 kg

DRUGS (5)
  1. KETEK [Suspect]
     Dosage: DOSE: UNK
     Dates: start: 20070110
  2. DIOVAN HCT [Concomitant]
  3. SYNTHROID [Concomitant]
  4. ASPIRIN [Concomitant]
  5. FISH OIL [Concomitant]
     Dosage: DOSE: UNK

REACTIONS (1)
  - LIVER FUNCTION TEST ABNORMAL [None]
